FAERS Safety Report 7022470-5 (Version None)
Quarter: 2010Q3

REPORT INFORMATION
  Report Type: 
  Country: None (occurrence: None)
  Receive Date: 20100930
  Receipt Date: 20100922
  Transmission Date: 20110219
  Serious: Yes (Hospitalization)
  Sender: FDA-Public Use
  Company Number: BE-MPIJNJ-2010-03731

PATIENT

DRUGS (10)
  1. VELCADE [Suspect]
     Indication: MULTIPLE MYELOMA
     Dosage: 2.36 MG, CYCLIC
     Route: 042
     Dates: start: 20090417, end: 20090427
  2. VORINOSTAT [Suspect]
     Indication: MULTIPLE MYELOMA
     Dosage: 400 MG, CYCLIC
     Route: 048
     Dates: start: 20090417, end: 20090501
  3. ASAFLOW [Concomitant]
     Dosage: 80 MG, UNK
  4. FOLATE [Concomitant]
     Dosage: 5 MG, UNK
  5. ZANTAC                             /00550802/ [Concomitant]
     Dosage: 300 MG, UNK
  6. GLUCOPHAGE [Concomitant]
     Dosage: 500 MG, UNK
  7. GLURENORM [Concomitant]
     Dosage: 30 MG, UNK
  8. DURAGESIC-100 [Concomitant]
     Dosage: 12.5 UG, UNK
  9. MS DIRECT [Concomitant]
     Dosage: 20 MG, UNK
  10. LARGACTIL                          /00011902/ [Concomitant]

REACTIONS (1)
  - HYPERVISCOSITY SYNDROME [None]
